FAERS Safety Report 9717718 (Version 2)
Quarter: 2013Q4

REPORT INFORMATION
  Report Type: Spontaneous
  Country: AU (occurrence: AU)
  Receive Date: 20131127
  Receipt Date: 20131127
  Transmission Date: 20140711
  Serious: Yes (Disabling)
  Sender: FDA-Public Use
  Company Number: AU-PFIZER INC-2013316863

PATIENT
  Age: 69 Year
  Sex: Female

DRUGS (4)
  1. LYRICA [Suspect]
     Indication: NEURALGIA
     Dosage: 75 MG, 1X/DAY
     Route: 048
     Dates: start: 20110701, end: 20110707
  2. CIPRAMIL [Concomitant]
     Dosage: 10 MG, 1X/DAY
  3. NOTEN [Concomitant]
     Dosage: 50 MG, 1X/DAY
  4. LIPITOR [Concomitant]
     Dosage: 10 MG, 1X/DAY

REACTIONS (8)
  - Myalgia [Unknown]
  - Diarrhoea [Unknown]
  - Hypoaesthesia [Unknown]
  - Dysphagia [Unknown]
  - Bladder disorder [Unknown]
  - Nausea [Unknown]
  - Constipation [Unknown]
  - Headache [Unknown]
